FAERS Safety Report 8359188-2 (Version None)
Quarter: 2012Q2

REPORT INFORMATION
  Report Type: 
  Country: None (occurrence: None)
  Receive Date: 20120511
  Receipt Date: 20120504
  Transmission Date: 20120825
  Serious: Yes (Hospitalization)
  Sender: FDA-Public Use
  Company Number: TPA2012A01395

PATIENT
  Age: 47 Year
  Sex: Female
  Weight: 55.3388 kg

DRUGS (8)
  1. RANITIDINE HYDROCHLORIDE [Concomitant]
  2. GABAPENTIN [Concomitant]
  3. CARAFATE [Concomitant]
  4. VENTOLIN [Concomitant]
  5. PREVACID [Suspect]
     Indication: ULCER
     Dosage: 30 MG, 2 IN 1 D, PER ORAL; 30MG, 2 IN 1 D, PER ORAL
     Route: 048
     Dates: start: 20090101
  6. PREVACID [Suspect]
     Indication: GASTROOESOPHAGEAL REFLUX DISEASE
     Dosage: 30 MG, 2 IN 1 D, PER ORAL; 30MG, 2 IN 1 D, PER ORAL
     Route: 048
     Dates: start: 20090101
  7. PREVACID [Suspect]
     Indication: ULCER
     Dosage: 30 MG, 2 IN 1 D, PER ORAL; 30MG, 2 IN 1 D, PER ORAL
     Route: 048
     Dates: start: 20120101, end: 20120229
  8. PREVACID [Suspect]
     Indication: GASTROOESOPHAGEAL REFLUX DISEASE
     Dosage: 30 MG, 2 IN 1 D, PER ORAL; 30MG, 2 IN 1 D, PER ORAL
     Route: 048
     Dates: start: 20120101, end: 20120229

REACTIONS (8)
  - DYSPHONIA [None]
  - WEIGHT DECREASED [None]
  - FAECES DISCOLOURED [None]
  - BURNING SENSATION [None]
  - ULCER HAEMORRHAGE [None]
  - HAEMATOCHEZIA [None]
  - PAINFUL DEFAECATION [None]
  - THROAT IRRITATION [None]
